FAERS Safety Report 4722797-3 (Version None)
Quarter: 2005Q3

REPORT INFORMATION
  Report Type: 
  Country: None (occurrence: None)
  Receive Date: 20050722
  Receipt Date: 20050615
  Transmission Date: 20060218
  Serious: Yes (Life-Threatening)
  Sender: FDA-Public Use
  Company Number: 200511769JP

PATIENT
  Age: 78 Year
  Sex: Male
  Weight: 44.4 kg

DRUGS (7)
  1. AMARYL [Suspect]
     Indication: DIABETES MELLITUS
     Route: 048
     Dates: end: 20050615
  2. HALFDIGOXIN [Concomitant]
     Route: 048
  3. CLARITHROMYCIN [Concomitant]
     Route: 048
  4. LASIX [Concomitant]
     Route: 048
  5. GLORIAMIN [Concomitant]
     Route: 048
     Dates: start: 20041208
  6. MAGNESIUM OXIDE [Concomitant]
     Route: 048
  7. HOKUNALIN [Concomitant]
     Route: 062

REACTIONS (2)
  - CONVULSION [None]
  - HYPOGLYCAEMIA [None]
